FAERS Safety Report 8546135-3 (Version None)
Quarter: 2012Q3

REPORT INFORMATION
  Report Type: 
  Country: None (occurrence: None)
  Receive Date: 20120727
  Receipt Date: 20120719
  Transmission Date: 20120928
  Serious: No
  Sender: FDA-Public Use
  Company Number: US-009507513-1207USA002257

PATIENT

DRUGS (2)
  1. LIPITOR [Concomitant]
     Indication: ARTHROPOD BITE
     Dosage: UNK
  2. CLARINEX [Suspect]
     Dosage: 5 MG, QD
     Route: 048
     Dates: start: 20120706, end: 20120707

REACTIONS (5)
  - ANXIETY [None]
  - MYALGIA [None]
  - NERVOUSNESS [None]
  - GASTRIC DISORDER [None]
  - DIZZINESS [None]
